FAERS Safety Report 17565721 (Version 2)
Quarter: 2020Q2

REPORT INFORMATION
  Report Type: Spontaneous
  Country: US (occurrence: US)
  Receive Date: 20200320
  Receipt Date: 20200612
  Transmission Date: 20200713
  Serious: Yes (Other)
  Sender: FDA-Public Use
  Company Number: US-BAYER-2020-047873

PATIENT
  Age: 39 Year
  Sex: Female
  Weight: 63.95 kg

DRUGS (1)
  1. MIRENA [Suspect]
     Active Substance: LEVONORGESTREL
     Indication: CONTRACEPTION
     Dosage: 20 ?G PER DAY, CONT
     Route: 015
     Dates: start: 20191029, end: 20200228

REACTIONS (2)
  - Back pain [None]
  - Embedded device [Recovered/Resolved]

NARRATIVE: CASE EVENT DATE: 20200227
